FAERS Safety Report 4324624-5 (Version None)
Quarter: 2004Q1

REPORT INFORMATION
  Report Type: 
  Country: None (occurrence: None)
  Receive Date: 20040325
  Receipt Date: 20040325
  Transmission Date: 20041129
  Serious: Yes (Life-Threatening, Hospitalization, Disabling, Other)
  Sender: FDA-Public Use
  Company Number: None

PATIENT
  Age: 28 Year
  Sex: Male
  Weight: 92.9874 kg

DRUGS (1)
  1. PAXIL [Suspect]
     Indication: SOCIAL PHOBIA
     Dosage: 40 MG ONCE DAILY (ORAL)
     Route: 048
     Dates: start: 20010301, end: 20010701

REACTIONS (2)
  - ANORGASMIA [None]
  - TRAUMATIC BRAIN INJURY [None]
